FAERS Safety Report 9921127 (Version 1)
Quarter: 2013Q4

REPORT INFORMATION
  Report Type: Spontaneous
  Country: DE (occurrence: None)
  Receive Date: 20131230
  Receipt Date: 20131230
  Transmission Date: 20140711
  Serious: Yes (Hospitalization)
  Sender: FDA-Public Use
  Company Number: E2B_00001372

PATIENT
  Age: 49 Year
  Sex: Male
  Weight: 70 kg

DRUGS (3)
  1. SIMVASTATIN (UNKNOWN) (SIMVASTATIN) UNK, UNKUNK [Suspect]
     Indication: PRODUCT USED FOR UNKNOWN INDICATION
  2. FENOFIBRAT (UNKNOWN) (FENOFIBRATE) [Suspect]
     Indication: PRODUCT USED FOR UNKNOWN INDICATION
  3. TRAMADOL (UNKNOWN) (TRAMADOL) [Suspect]
     Indication: PRODUCT USED FOR UNKNOWN INDICATION

REACTIONS (1)
  - Convulsion [None]
